FAERS Safety Report 6822205-2 (Version None)
Quarter: 2010Q3

REPORT INFORMATION
  Report Type: 
  Country: None (occurrence: None)
  Receive Date: 20100708
  Receipt Date: 20100628
  Transmission Date: 20110219
  Serious: Yes (Hospitalization)
  Sender: FDA-Public Use
  Company Number: NL-JNJFOC-20100608577

PATIENT
  Sex: Male

DRUGS (8)
  1. REMICADE [Suspect]
     Indication: CROHN'S DISEASE
     Route: 042
  2. LANVIS [Suspect]
     Indication: CROHN'S DISEASE
  3. PENTASA [Suspect]
     Indication: CROHN'S DISEASE
  4. FOLIUMZUUR [Concomitant]
  5. NEXIUM [Concomitant]
  6. ENTOCORT EC [Concomitant]
  7. PAMIDRONATE DISODIUM [Concomitant]
  8. VENOFER [Concomitant]

REACTIONS (1)
  - PULMONARY EMBOLISM [None]
